FAERS Safety Report 5727897-7 (Version None)
Quarter: 2008Q2

REPORT INFORMATION
  Report Type: 
  Country: None (occurrence: None)
  Receive Date: 20080505
  Receipt Date: 20080423
  Transmission Date: 20081010
  Serious: Yes (Other)
  Sender: FDA-Public Use
  Company Number: BR-PFIZER INC-2007068126

PATIENT
  Sex: Female
  Weight: 56 kg

DRUGS (1)
  1. CHANTIX [Suspect]
     Indication: SMOKING CESSATION THERAPY
     Route: 048
     Dates: start: 20070719, end: 20070101

REACTIONS (4)
  - AMNESIA [None]
  - BLOOD PRESSURE INCREASED [None]
  - COORDINATION ABNORMAL [None]
  - FATIGUE [None]
